FAERS Safety Report 7170664-0 (Version None)
Quarter: 2010Q4

REPORT INFORMATION
  Report Type: 
  Country: None (occurrence: None)
  Receive Date: 20101217
  Receipt Date: 20101210
  Transmission Date: 20110411
  Serious: Yes (Hospitalization)
  Sender: FDA-Public Use
  Company Number: B0689449A

PATIENT
  Age: 88 Year
  Sex: Female

DRUGS (3)
  1. ZANTAC [Suspect]
     Indication: PRODUCT USED FOR UNKNOWN INDICATION
     Dosage: 300MG PER DAY
     Route: 048
  2. TAKEPRON [Suspect]
     Indication: GASTRITIS
     Route: 048
  3. OMEPRAL [Suspect]
     Indication: GASTRITIS
     Route: 048

REACTIONS (6)
  - BLOOD DISORDER [None]
  - FRACTURE [None]
  - HAEMORRHAGE [None]
  - HYPERGASTRINAEMIA [None]
  - IRON DEFICIENCY ANAEMIA [None]
  - LARGE INTESTINE CARCINOMA [None]
